FAERS Safety Report 5202855-X (Version None)
Quarter: 2006Q4

REPORT INFORMATION
  Report Type: 
  Country: None (occurrence: None)
  Receive Date: 20061016
  Receipt Date: 20060914
  Transmission Date: 20070319
  Serious: No
  Sender: FDA-Public Use
  Company Number: 2006SP003289

PATIENT
  Age: 89 Year
  Sex: Female
  Weight: 58.9676 kg

DRUGS (10)
  1. LUNESTA [Suspect]
     Indication: INSOMNIA
     Dosage: 3 MG HS ORAL
     Route: 048
     Dates: start: 20060913
  2. DARVOCET [Suspect]
     Indication: PAIN
     Dates: start: 20060913
  3. CLARITIN [Concomitant]
  4. DIGOXIN [Concomitant]
  5. VALSARTAN [Concomitant]
  6. SYNTHROID [Concomitant]
  7. FOSAMAX [Concomitant]
  8. VITAMIN CAP [Concomitant]
  9. OXYCONTIN [Concomitant]
  10. COUMADIN [Concomitant]

REACTIONS (2)
  - CONTUSION [None]
  - EXCORIATION [None]
